FAERS Safety Report 8381614-3 (Version None)
Quarter: 2012Q2

REPORT INFORMATION
  Report Type: 
  Country: None (occurrence: None)
  Receive Date: 20120524
  Receipt Date: 20120510
  Transmission Date: 20120825
  Serious: No
  Sender: FDA-Public Use
  Company Number: US-ASTRAZENECA-2012SE30094

PATIENT
  Age: 88 Year
  Sex: Female
  Weight: 49.9 kg

DRUGS (2)
  1. BUDESONIDE [Suspect]
     Indication: COLITIS
     Route: 048
     Dates: start: 20120101
  2. MOTEX [Concomitant]

REACTIONS (4)
  - DIARRHOEA [None]
  - INTENTIONAL DRUG MISUSE [None]
  - HEARING IMPAIRED [None]
  - MALAISE [None]
